FAERS Safety Report 21507233 (Version 1)
Quarter: 2022Q4

REPORT INFORMATION
  Report Type: Spontaneous
  Country: US (occurrence: None)
  Receive Date: 20221025
  Receipt Date: 20221025
  Transmission Date: 20230112
  Serious: Yes (Other)
  Sender: FDA-Public Use
  Company Number: None

PATIENT
  Age: 63 Year
  Sex: Female

DRUGS (1)
  1. BUPROPION [Suspect]
     Active Substance: BUPROPION
     Indication: Major depression
     Dosage: 100 MG  Q 12 PO
     Route: 048
     Dates: start: 20200620, end: 20200628

REACTIONS (2)
  - Palpitations [None]
  - Feeling abnormal [None]

NARRATIVE: CASE EVENT DATE: 20200628
